FAERS Safety Report 4879915-6 (Version None)
Quarter: 2006Q1

REPORT INFORMATION
  Report Type: 
  Country: None (occurrence: None)
  Receive Date: 20060113
  Receipt Date: 20060103
  Transmission Date: 20060701
  Serious: Yes (Hospitalization, Disabling)
  Sender: FDA-Public Use
  Company Number: US-MERCK-0601USA00265

PATIENT
  Age: 53 Year
  Sex: Male
  Weight: 58 kg

DRUGS (1)
  1. VIOXX [Suspect]
     Indication: ARTHRITIS
     Route: 048
     Dates: start: 19990927, end: 20011216

REACTIONS (1)
  - CEREBROVASCULAR ACCIDENT [None]
